FAERS Safety Report 13832870 (Version 1)
Quarter: 2017Q3

REPORT INFORMATION
  Report Type: Spontaneous
  Country: US (occurrence: US)
  Receive Date: 20170803
  Receipt Date: 20170803
  Transmission Date: 20171127
  Serious: No
  Sender: FDA-Public Use
  Company Number: US-ROCHE-1377909

PATIENT
  Sex: Female

DRUGS (2)
  1. YOGURT [Concomitant]
  2. BONIVA [Suspect]
     Active Substance: IBANDRONATE SODIUM
     Indication: PRODUCT USED FOR UNKNOWN INDICATION
     Route: 065

REACTIONS (3)
  - Bone density decreased [Unknown]
  - Nausea [Unknown]
  - Blood pressure increased [Unknown]
